FAERS Safety Report 6851120-3 (Version None)
Quarter: 2010Q3

REPORT INFORMATION
  Report Type: 
  Country: None (occurrence: None)
  Receive Date: 20100716
  Receipt Date: 20071024
  Transmission Date: 20110219
  Serious: No
  Sender: FDA-Public Use
  Company Number: US-PFIZER INC-2007091240

PATIENT
  Sex: Female
  Weight: 86.363 kg

DRUGS (16)
  1. CHANTIX [Suspect]
     Indication: SMOKING CESSATION THERAPY
     Dates: start: 20071022
  2. CLINDAMYCIN HYDROCHLORIDE [Interacting]
     Indication: TOOTH ABSCESS
     Dates: start: 20071018
  3. OXYCONTIN [Concomitant]
  4. MOTRIN [Concomitant]
     Indication: TOOTHACHE
  5. HYDROXYZINE [Concomitant]
  6. KLOR-CON [Concomitant]
  7. ATENOLOL [Concomitant]
  8. ZYRTEC [Concomitant]
  9. ACETYLSALICYLIC ACID [Concomitant]
  10. VALSARTAN [Concomitant]
  11. DYAZIDE [Concomitant]
  12. ALL OTHER THERAPEUTIC PRODUCTS [Concomitant]
  13. OMEPRAZOLE [Concomitant]
  14. TYLENOL [Concomitant]
  15. MELATONIN [Concomitant]
  16. DIAZEPAM [Concomitant]

REACTIONS (3)
  - DRUG INTERACTION [None]
  - SWELLING FACE [None]
  - TOOTHACHE [None]
